FAERS Safety Report 7455060-0 (Version None)
Quarter: 2011Q2

REPORT INFORMATION
  Report Type: 
  Country: None (occurrence: None)
  Receive Date: 20110503
  Receipt Date: 20110427
  Transmission Date: 20111010
  Serious: Yes (Hospitalization)
  Sender: FDA-Public Use
  Company Number: KR-BRISTOL-MYERS SQUIBB COMPANY-15702970

PATIENT
  Age: 62 Year
  Sex: Male

DRUGS (3)
  1. DOCETAXEL [Suspect]
     Indication: HEAD AND NECK CANCER
     Dosage: MOST RECENT INFUSION ON 20JAN11
     Route: 042
     Dates: start: 20101209
  2. CETUXIMAB [Suspect]
     Indication: HEAD AND NECK CANCER
     Dosage: 09-09DEC10(400MG/M2)ONCE,250MG/M2 1 IN 1 WEEK; MOST RECENT INFUSION ON 15MAR11
     Route: 042
     Dates: start: 20101209
  3. CISPLATIN [Suspect]
     Indication: HEAD AND NECK CANCER
     Dosage: 75MG/M2 9DEC10-20JAN11(42DAYS) 1 IN 3WEEK,30MG/M2 14FEB11- ;MOST RECENT INFUSION ON 15MAR2011
     Route: 042
     Dates: start: 20101209

REACTIONS (1)
  - STOMATITIS [None]
